FAERS Safety Report 10682180 (Version 1)
Quarter: 2014Q4

REPORT INFORMATION
  Report Type: Spontaneous
  Country: FR (occurrence: None)
  Receive Date: 20141224
  Receipt Date: 20141224
  Transmission Date: 20150529
  Serious: Yes (Hospitalization)
  Sender: FDA-Public Use
  Company Number: FR-20140414

PATIENT
  Age: 69 Year
  Sex: Female

DRUGS (2)
  1. DOTAREM [Suspect]
     Active Substance: GADOTERATE MEGLUMINE
     Indication: CEREBRAL DISORDER
     Dosage: NOT OTHERWISE SPECIFIED
     Route: 042
     Dates: start: 20141211, end: 20141211
  2. DOTAREM [Suspect]
     Active Substance: GADOTERATE MEGLUMINE
     Dosage: NOT OTHERWISE SPECIFIED
     Route: 042
     Dates: start: 20141211, end: 20141211

REACTIONS (4)
  - Feeling hot [None]
  - Dyspnoea [None]
  - Cough [None]
  - Retching [None]

NARRATIVE: CASE EVENT DATE: 20141211
